FAERS Safety Report 14775471 (Version 2)
Quarter: 2019Q3

REPORT INFORMATION
  Report Type: Spontaneous
  Country: US (occurrence: US)
  Receive Date: 20180418
  Receipt Date: 20190916
  Transmission Date: 20191004
  Serious: Yes (Other)
  Sender: FDA-Public Use
  Company Number: US-CELGENEUS-USA-20180403257

PATIENT
  Age: 63 Year
  Sex: Female

DRUGS (4)
  1. INF [Concomitant]
     Active Substance: INTERFERON ALFA-2B
     Dosage: 180 MILLIGRAM
     Route: 065
  2. THALOMID [Suspect]
     Active Substance: THALIDOMIDE
     Indication: POLYCYTHAEMIA VERA
     Route: 048
  3. INF [Concomitant]
     Active Substance: INTERFERON ALFA-2B
     Indication: POLYCYTHAEMIA VERA
     Dosage: 4X10^6 U EVERY OTHER DAY
     Route: 065
  4. THALOMID [Suspect]
     Active Substance: THALIDOMIDE
     Indication: OFF LABEL USE

REACTIONS (1)
  - Progressive multifocal leukoencephalopathy [Recovered/Resolved]
